FAERS Safety Report 14487719 (Version 3)
Quarter: 2018Q2

REPORT INFORMATION
  Report Type: Report from Study
  Country: US (occurrence: US)
  Receive Date: 20180205
  Receipt Date: 20180627
  Transmission Date: 20180711
  Serious: Yes (Hospitalization)
  Sender: FDA-Public Use
  Company Number: PHHY2018US016822

PATIENT
  Age: 80 Year
  Sex: Male
  Weight: 62 kg

DRUGS (2)
  1. LENVATINIB [Suspect]
     Active Substance: LENVATINIB
     Indication: RENAL CELL CARCINOMA
     Dosage: (18MG OR 14MG), QD
     Route: 048
     Dates: start: 20171201, end: 20180212
  2. AFINITOR [Suspect]
     Active Substance: EVEROLIMUS
     Indication: RENAL CELL CARCINOMA
     Dosage: 5 MG, QD
     Route: 048
     Dates: start: 20171201, end: 20180212

REACTIONS (13)
  - Decreased appetite [Unknown]
  - Stomatitis [Recovered/Resolved]
  - Red blood cell count increased [Unknown]
  - Blood uric acid increased [Unknown]
  - White blood cell count decreased [Unknown]
  - Dehydration [Unknown]
  - Blood urea increased [Unknown]
  - Platelet count decreased [Unknown]
  - Blood creatinine increased [Unknown]
  - Blood albumin decreased [Unknown]
  - Hypotension [Recovered/Resolved]
  - Blood immunoglobulin G increased [Unknown]
  - Oral pain [Unknown]

NARRATIVE: CASE EVENT DATE: 20180111
